FAERS Safety Report 16301417 (Version 3)
Quarter: 2023Q4

REPORT INFORMATION
  Report Type: Spontaneous
  Country: CA (occurrence: CA)
  Receive Date: 20190510
  Receipt Date: 20231207
  Transmission Date: 20240109
  Serious: Yes (Hospitalization, Other)
  Sender: FDA-Public Use
  Company Number: CA-BAXTER-2019BAX009232

PATIENT
  Age: 48 Year
  Sex: Female
  Weight: 106 kg

DRUGS (95)
  1. DOXORUBICIN [Suspect]
     Active Substance: DOXORUBICIN
     Indication: Breast cancer female
     Dosage: 136.0 MILLIGRAM, 1 EVERY 2 WEEKS, DOSAGE FORM: SOLUTION INTRAVENOUS
     Route: 042
  2. DOXORUBICIN [Suspect]
     Active Substance: DOXORUBICIN
     Dosage: 136.0 MILLIGRAM, 1 EVERY 2 WEEKS, DOSAGE FORM: INJECTION
     Route: 042
  3. DOXORUBICIN [Suspect]
     Active Substance: DOXORUBICIN
     Dosage: UNK, DOSAGE FORM: INJECTION
     Route: 042
  4. DOXORUBICIN [Suspect]
     Active Substance: DOXORUBICIN
     Dosage: 136.0 MILLIGRAM, DOSAGE FORM: INJECTION
     Route: 042
  5. DOXORUBICIN [Suspect]
     Active Substance: DOXORUBICIN
     Dosage: 136.0 MILLIGRAM, 1 EVERY 2 WEEKS, DOSAGE FORM: INJECTION
     Route: 042
  6. DOXORUBICIN [Suspect]
     Active Substance: DOXORUBICIN
     Dosage: UNK
     Route: 042
  7. CYCLOPHOSPHAMIDE [Suspect]
     Active Substance: CYCLOPHOSPHAMIDE
     Indication: Breast cancer female
     Dosage: UNK, DOSAGE FORM: POWDER FOR SOLUTION FOR INJECTION/INFUSION
     Route: 065
  8. CYCLOPHOSPHAMIDE [Suspect]
     Active Substance: CYCLOPHOSPHAMIDE
     Indication: Tardive dyskinesia
     Dosage: UNK, DOSAGE FORM: POWDER FOR SOLUTION FOR INJECTION/INFUSION
     Route: 042
  9. CYCLOPHOSPHAMIDE [Suspect]
     Active Substance: CYCLOPHOSPHAMIDE
     Dosage: 1360.0 MILLIGRAMS, 1 EVERY 2 WEEKS, DOSAGE FORM: POWDER FOR SOLUTION FOR INJECTION/INFUSION
     Route: 042
  10. CYCLOPHOSPHAMIDE [Suspect]
     Active Substance: CYCLOPHOSPHAMIDE
     Dosage: 1360.0 MILLIGRAMS, DOSAGE FORM: POWDER FOR SOLUTION FOR INJECTION/INFUSION
     Route: 042
  11. CYCLOPHOSPHAMIDE [Suspect]
     Active Substance: CYCLOPHOSPHAMIDE
     Dosage: 1360.0 MILLIGRAM, 1 EVERY 2 DAYS, DOSAGE FORM: NOT SPECIFIED
     Route: 042
  12. CYCLOPHOSPHAMIDE [Suspect]
     Active Substance: CYCLOPHOSPHAMIDE
     Dosage: UNK
     Route: 042
  13. EMEND [Suspect]
     Active Substance: APREPITANT
     Indication: Supportive care
     Dosage: 125.0 MILLIGRAM
     Route: 048
  14. EMEND [Suspect]
     Active Substance: APREPITANT
     Dosage: UNK
     Route: 048
  15. EMEND [Suspect]
     Active Substance: APREPITANT
     Dosage: 125.0 MILLIGRAM, 1 EVERY 1 DAYS
     Route: 048
  16. EMEND [Suspect]
     Active Substance: APREPITANT
     Dosage: 125.0 MILLIGRAM, 1 EVERY 1 DAYS
     Route: 048
  17. EMEND [Suspect]
     Active Substance: APREPITANT
     Dosage: 80.0 MILLIGRAM, 1 EVERY 1 DAYS
     Route: 048
  18. EMEND [Suspect]
     Active Substance: APREPITANT
     Dosage: 80.0 MILLIGRAM, 1 EVERY 1 DAYS
     Route: 048
  19. BETAMETHASONE [Suspect]
     Active Substance: BETAMETHASONE\BETAMETHASONE DIPROPIONATE
     Indication: Tardive dyskinesia
     Dosage: UNK, EVERY 12 HOURS
     Route: 048
  20. BETAMETHASONE [Suspect]
     Active Substance: BETAMETHASONE\BETAMETHASONE DIPROPIONATE
     Dosage: UNK, 2 EVERY 1 DAYS
     Route: 065
  21. BETAMETHASONE [Suspect]
     Active Substance: BETAMETHASONE\BETAMETHASONE DIPROPIONATE
     Dosage: UNK
     Route: 048
  22. DEXAMETHASONE [Suspect]
     Active Substance: DEXAMETHASONE
     Indication: Supportive care
     Dosage: UNK
     Route: 048
  23. DEXAMETHASONE [Suspect]
     Active Substance: DEXAMETHASONE
     Dosage: 20.0 MILLIGRAM, 1 EVERY 1 DAYS
     Route: 048
  24. DEXAMETHASONE [Suspect]
     Active Substance: DEXAMETHASONE
     Dosage: 20.0 MILLIGRAM, 1 EVERY 1 DAYS
     Route: 048
  25. DEXAMETHASONE [Suspect]
     Active Substance: DEXAMETHASONE
     Dosage: 20.0 MILLIGRAM, 1 EVERY 1 DAYS, DOSAGE FORM: NOT SPECIFIED
     Route: 048
  26. DEXAMETHASONE [Suspect]
     Active Substance: DEXAMETHASONE
     Dosage: UNK, DOSAGE FORM: NOT SPECIFIED
     Route: 048
  27. ENOXAPARIN [Suspect]
     Active Substance: ENOXAPARIN
     Indication: Tardive dyskinesia
     Dosage: 150.0 MILLIGRAM, 1 EVERY 1 DAYS
     Route: 058
  28. ENOXAPARIN [Suspect]
     Active Substance: ENOXAPARIN
     Dosage: UNK
     Route: 058
  29. LEVOFLOXACIN [Suspect]
     Active Substance: LEVOFLOXACIN
     Indication: Tardive dyskinesia
     Dosage: 500.0 MILLIGRAM, 1 EVERY 1 DAYS, DOSAGE FORM: NOT SPECIFIED
     Route: 048
  30. LEVOFLOXACIN [Suspect]
     Active Substance: LEVOFLOXACIN
     Dosage: 500.0 MILLIGRAM, 1 EVERY 1 DAYS
     Route: 048
  31. LEVOFLOXACIN [Suspect]
     Active Substance: LEVOFLOXACIN
     Dosage: 500.0 MILLIGRAM
     Route: 048
  32. LEVOFLOXACIN [Suspect]
     Active Substance: LEVOFLOXACIN
     Dosage: UNK
     Route: 048
  33. LORAZEPAM [Suspect]
     Active Substance: LORAZEPAM
     Indication: Tardive dyskinesia
     Dosage: 0.5 MILLIGRAM, 2 EVERY 1 DAYS, DOSAGE FORM: NOT SPECIFIED
     Route: 048
  34. LORAZEPAM [Suspect]
     Active Substance: LORAZEPAM
     Dosage: 0.5 MILLIGRAM, DOSAGE FORM: TABLET
     Route: 048
  35. LORAZEPAM [Suspect]
     Active Substance: LORAZEPAM
     Dosage: 0.5 MILLIGRAM, 2 EVERY 1 DAYS, DOSAGE FORM: TABLET
     Route: 048
  36. LORAZEPAM [Suspect]
     Active Substance: LORAZEPAM
     Dosage: 0.5 MILLIGRAM, 1 EVERY 1 DAYS, DOSAGE FORM: TABLET
     Route: 048
  37. LORAZEPAM [Suspect]
     Active Substance: LORAZEPAM
     Dosage: 0.5 MILLIGRAM, EVERY 12 HOURS, DOSAGE FORM: TABLET
     Route: 048
  38. LORAZEPAM [Suspect]
     Active Substance: LORAZEPAM
     Dosage: UNK
     Route: 048
  39. METOCLOPRAMIDE [Suspect]
     Active Substance: METOCLOPRAMIDE
     Indication: Tardive dyskinesia
     Dosage: 10.0 MILLIGRAM, 4 EVERY 1 DAYS
     Route: 048
  40. METOCLOPRAMIDE [Suspect]
     Active Substance: METOCLOPRAMIDE
     Dosage: 10.0 MILLIGRAM, 1 EVERY 1 DAYS
     Route: 048
  41. METOCLOPRAMIDE [Suspect]
     Active Substance: METOCLOPRAMIDE
     Dosage: 10.0 MILLIGRAM, 1 EVERY 6 HOURS
     Route: 048
  42. METOCLOPRAMIDE [Suspect]
     Active Substance: METOCLOPRAMIDE
     Dosage: UNK
     Route: 048
  43. ONDANSETRON [Suspect]
     Active Substance: ONDANSETRON
     Indication: Supportive care
     Dosage: 8.0 MILLIGRAM, DOSAGE FORM: ORODISPERSIBLE FILM
     Route: 048
  44. ONDANSETRON [Suspect]
     Active Substance: ONDANSETRON
     Dosage: 8.0 MILLIGRAM, DOSAGE FORM: ORODISPERSIBLE FILM
     Route: 048
  45. ONDANSETRON [Suspect]
     Active Substance: ONDANSETRON
     Dosage: 8.0 MILLIGRAM, 1 EVERY 1 DAYS, DOSAGE FORM: NOT SPECIFIED
     Route: 048
  46. ONDANSETRON [Suspect]
     Active Substance: ONDANSETRON
     Dosage: 8.0 MILLIGRAM, 1 EVERY 1 DAYS, DOSAGE FORM: ORODISPERSIBLE FILM
     Route: 048
  47. ONDANSETRON [Suspect]
     Active Substance: ONDANSETRON
     Dosage: UNK, DOSAGE FORM: ORODISPERSIBLE FILM
     Route: 048
  48. ONDANSETRON [Suspect]
     Active Substance: ONDANSETRON
     Dosage: UNK, DOSAGE FORM: ORODISPERSIBLE FILM
     Route: 065
  49. ONDANSETRON [Suspect]
     Active Substance: ONDANSETRON
     Dosage: UNK
     Route: 048
  50. ONDANSETRON [Suspect]
     Active Substance: ONDANSETRON
     Dosage: 8.0 MILLIGRAM, DOSAGE FORM: NOT SPECIFIED
     Route: 048
  51. PACLITAXEL [Suspect]
     Active Substance: PACLITAXEL
     Indication: Breast cancer female
     Dosage: 393.0 MILLIGRAM, DOSAGE FORM: SOLUTION FOR INJECTION/INFUSION
     Route: 042
  52. PACLITAXEL [Suspect]
     Active Substance: PACLITAXEL
     Indication: Supportive care
     Dosage: 303.0 MILLIGRAM, DOSAGE FORM: SOLUTION FOR INJECTION/INFUSION
     Route: 042
  53. PACLITAXEL [Suspect]
     Active Substance: PACLITAXEL
     Dosage: 393.0 MILLIGRAM, DOSAGE FORM: SOLUTION FOR INJECTION/INFUSION
     Route: 042
  54. PACLITAXEL [Suspect]
     Active Substance: PACLITAXEL
     Dosage: 393.0 MILLIGRAM, 1 EVERY 1 DAYS, DOSAGE FORM: SOLUTION FOR INJECTION/INFUSION
     Route: 042
  55. PACLITAXEL [Suspect]
     Active Substance: PACLITAXEL
     Dosage: 243.0 MILLIGRAM, 1 EVERY 1 DAYS, DOSAGE FORM: SOLUTION FOR INJECTION/INFUSION
     Route: 042
  56. PACLITAXEL [Suspect]
     Active Substance: PACLITAXEL
     Dosage: 243.0 MILLIGRAM, DOSAGE FORM: LIQUID INTRAVENOUS
     Route: 042
  57. PACLITAXEL [Suspect]
     Active Substance: PACLITAXEL
     Dosage: 303.0 MILLIGRAM, DOSAGE FORM: SOLUTION FOR INJECTION/INFUSION
     Route: 042
  58. PACLITAXEL [Suspect]
     Active Substance: PACLITAXEL
     Dosage: UNK
     Route: 042
  59. PACLITAXEL [Suspect]
     Active Substance: PACLITAXEL
     Dosage: 303.0 MILLIGRAM
     Route: 042
  60. PACLITAXEL [Suspect]
     Active Substance: PACLITAXEL
     Dosage: 393.0 MILLIGRAM
     Route: 042
  61. RANITIDINE HYDROCHLORIDE [Suspect]
     Active Substance: RANITIDINE HYDROCHLORIDE
     Indication: Tardive dyskinesia
     Dosage: 150.0 MILLIGRAM, 2 EVERY 1 DAYS
     Route: 048
  62. RANITIDINE HYDROCHLORIDE [Suspect]
     Active Substance: RANITIDINE HYDROCHLORIDE
     Dosage: 150.0 MILLIGRAM
     Route: 048
  63. RANITIDINE HYDROCHLORIDE [Suspect]
     Active Substance: RANITIDINE HYDROCHLORIDE
     Dosage: UNK
     Route: 048
  64. RANITIDINE HYDROCHLORIDE [Suspect]
     Active Substance: RANITIDINE HYDROCHLORIDE
     Dosage: 150.0 MILLIGRAM, EVERY 12 HOURS
     Route: 048
  65. RANITIDINE HYDROCHLORIDE [Suspect]
     Active Substance: RANITIDINE HYDROCHLORIDE
     Dosage: 150.0 MILLIGRAM, 1 EVERY 2 WEEKS
     Route: 048
  66. TRASTUZUMAB [Suspect]
     Active Substance: TRASTUZUMAB
     Indication: Tardive dyskinesia
     Dosage: 626.0 MILLIGRAM
     Route: 065
  67. TRASTUZUMAB [Suspect]
     Active Substance: TRASTUZUMAB
     Dosage: UNK
     Route: 048
  68. TRASTUZUMAB [Suspect]
     Active Substance: TRASTUZUMAB
     Dosage: 626.0 MILLIGRAM
     Route: 065
  69. TRASTUZUMAB [Suspect]
     Active Substance: TRASTUZUMAB
     Dosage: 866.0 MILLIGRAM, 1 EVERY 1 DAYS
     Route: 065
  70. TRASTUZUMAB [Suspect]
     Active Substance: TRASTUZUMAB
     Dosage: UNK
     Route: 065
  71. TRASTUZUMAB [Suspect]
     Active Substance: TRASTUZUMAB
     Dosage: 866.0 MILLIGRAM
     Route: 065
  72. TRASTUZUMAB [Suspect]
     Active Substance: TRASTUZUMAB
     Dosage: 626.0 MILLIGRAM, 1 EVERY 1 DAYS
     Route: 065
  73. ACETAMINOPHEN\CODEINE PHOSPHATE [Suspect]
     Active Substance: ACETAMINOPHEN\CODEINE PHOSPHATE
     Indication: Tardive dyskinesia
     Dosage: 30.0 MILLIGRAM, 1 EVERY 4 HOURS, ELX, USP160 MG-8 MG/5 ML, DOSAGE FORM: TABLET
     Route: 065
  74. ACETAMINOPHEN\CODEINE PHOSPHATE [Suspect]
     Active Substance: ACETAMINOPHEN\CODEINE PHOSPHATE
     Dosage: 30.0 MILLIGRAM, 1 EVERY 1 DAYS, ELX, USP160 MG-8 MG/5 ML, DOSAGE FRORM: TABLET
     Route: 065
  75. ACETAMINOPHEN\CODEINE PHOSPHATE [Suspect]
     Active Substance: ACETAMINOPHEN\CODEINE PHOSPHATE
     Dosage: 30.0 MILLIGRAM, 1 EVERY 1 DAYS, ELX, USP160 MG-8 MG/5 ML, DOSAGE FRORM: ELIXIR
     Route: 065
  76. ACETAMINOPHEN\CODEINE PHOSPHATE [Suspect]
     Active Substance: ACETAMINOPHEN\CODEINE PHOSPHATE
     Indication: Tardive dyskinesia
     Dosage: 30.0 MILLIGRAM, 1 EVERY 1 DAYS
     Route: 065
  77. ACETAMINOPHEN\CODEINE PHOSPHATE [Suspect]
     Active Substance: ACETAMINOPHEN\CODEINE PHOSPHATE
     Dosage: 30.0 MILLIGRAM, 1 EVERY 4 HOURS
     Route: 065
  78. ACETAMINOPHEN\CODEINE PHOSPHATE [Suspect]
     Active Substance: ACETAMINOPHEN\CODEINE PHOSPHATE
     Dosage: UNK
     Route: 065
  79. NEULASTA [Suspect]
     Active Substance: PEGFILGRASTIM
     Indication: Supportive care
     Dosage: 6.0 MILLIGRAM, DOSAGE FORM: SOLUTION SUBCUTANEOUS
     Route: 058
  80. NEULASTA [Suspect]
     Active Substance: PEGFILGRASTIM
     Dosage: 6.0 MILLIGRAM, DOSAGE FORM: SOLUTION FOR INFUSION
     Route: 058
  81. NEULASTA [Suspect]
     Active Substance: PEGFILGRASTIM
     Dosage: 6.0 MILLIGRAM, DOSAGE FORM: SOLUTION FOR INFUSION
     Route: 058
  82. NEULASTA [Suspect]
     Active Substance: PEGFILGRASTIM
     Dosage: 6.0 MILLIGRAM, 1 EVERY 1 DAYS, DOSAGE FORM: SOLUTION FOR INFUSION
     Route: 058
  83. NEUPOGEN [Suspect]
     Active Substance: FILGRASTIM
     Indication: Supportive care
     Dosage: 480.0 MICROGRAM, 1 EVERY 1 DAYS
     Route: 065
  84. NEUPOGEN [Suspect]
     Active Substance: FILGRASTIM
     Dosage: 480.0 MICROGRAM, 1 EVERY 1 DAYS
     Route: 048
  85. NEUPOGEN [Suspect]
     Active Substance: FILGRASTIM
     Dosage: 125.0 MICROGRAM, 1 EVERY 1 DAYS
     Route: 048
  86. NEUPOGEN [Suspect]
     Active Substance: FILGRASTIM
     Dosage: 480.0 MICROGRAM, 1 EVERY 1 DAYS
     Route: 065
  87. NEUPOGEN [Suspect]
     Active Substance: FILGRASTIM
     Dosage: 480.0 MICROGRAM, 1 EVERY 1 DAYS, DOSAGE FORM: SOLUTION INTRAVENOUS
     Route: 065
  88. FILGRASTIM [Suspect]
     Active Substance: FILGRASTIM
     Indication: Supportive care
     Dosage: UNK
     Route: 065
  89. FILGRASTIM [Suspect]
     Active Substance: FILGRASTIM
     Dosage: 480.0 MICROGRAM, 1 EVERY 1 DAYS
     Route: 048
  90. PEGFILGRASTIM [Suspect]
     Active Substance: PEGFILGRASTIM
     Indication: Product used for unknown indication
     Dosage: 6.0 MILLIGRAM
     Route: 058
  91. RANITIDINE [Suspect]
     Active Substance: RANITIDINE
     Indication: Tardive dyskinesia
     Dosage: UNK
     Route: 048
  92. RANITIDINE [Suspect]
     Active Substance: RANITIDINE
     Dosage: 150.0 MILLIGRAM, 1 EVERY 2 WEEKS
     Route: 048
  93. TYLENOL WITH CODEINE [Suspect]
     Active Substance: ACETAMINOPHEN\CODEINE PHOSPHATE
     Indication: Tardive dyskinesia
     Dosage: UNK
     Route: 065
  94. APREPITANT [Suspect]
     Active Substance: APREPITANT
     Indication: Supportive care
     Dosage: 80 MILLIGRAM, 1 EVERY 1 DAYS
     Route: 048
  95. APREPITANT [Suspect]
     Active Substance: APREPITANT
     Dosage: 125.0 MILLIGRAM
     Route: 048

REACTIONS (12)
  - Off label use [Recovered/Resolved]
  - Gastrointestinal disorder [Recovered/Resolved]
  - Computerised tomogram thorax abnormal [Recovered/Resolved]
  - Atelectasis [Recovered/Resolved]
  - Computerised tomogram thorax [Recovered/Resolved]
  - Hypoxia [Recovered/Resolved]
  - Cough [Recovered/Resolved]
  - Dyspnoea [Recovered/Resolved]
  - Fatigue [Recovered/Resolved]
  - Nausea [Recovered/Resolved]
  - Pyrexia [Recovered/Resolved]
  - Rash [Recovered/Resolved]
